FAERS Safety Report 7814676-X (Version None)
Quarter: 2011Q4

REPORT INFORMATION
  Report Type: 
  Country: None (occurrence: None)
  Receive Date: 20111013
  Receipt Date: 20111013
  Transmission Date: 20120403
  Serious: No
  Sender: FDA-Public Use
  Company Number: None

PATIENT
  Age: 54 Year
  Sex: Female
  Weight: 83.2 kg

DRUGS (2)
  1. ALLEGRA [Suspect]
     Indication: MULTIPLE ALLERGIES
     Dosage: 180MG 1 DAILY BY MOUTH
     Dates: start: 20110101
  2. ALLEGRA [Suspect]
     Indication: NASAL CONGESTION
     Dosage: 180MG 1 DAILY BY MOUTH
     Dates: start: 20110101

REACTIONS (2)
  - PRODUCT SUBSTITUTION ISSUE [None]
  - DRUG INEFFECTIVE [None]
